FAERS Safety Report 6200529-X (Version None)
Quarter: 2009Q2

REPORT INFORMATION
  Report Type: 
  Country: None (occurrence: None)
  Receive Date: 20090522
  Receipt Date: 20090518
  Transmission Date: 20091009
  Serious: Yes (Hospitalization)
  Sender: FDA-Public Use
  Company Number: DE-WYE-H08858009

PATIENT
  Sex: Female

DRUGS (5)
  1. CORDAREX [Suspect]
     Indication: ATRIAL FIBRILLATION
     Route: 048
     Dates: start: 20080201, end: 20090301
  2. VOTUM [Concomitant]
     Indication: HYPERTENSION
     Dosage: UNSPECIFIED
     Route: 048
  3. DELIX [Concomitant]
     Indication: HYPERTENSION
     Dosage: UNSPECIFIED
     Route: 048
  4. LEVOTHYROXINE SODIUM [Concomitant]
     Indication: HYPOTHYROIDISM
     Dosage: UNSPECIFIED
     Route: 048
  5. ASS ^STADA^ [Concomitant]
     Indication: CORONARY ARTERY DISEASE
     Dosage: UNSPECIFIED
     Route: 048

REACTIONS (3)
  - ALVEOLITIS [None]
  - BRONCHITIS CHRONIC [None]
  - INTERSTITIAL LUNG DISEASE [None]
